FAERS Safety Report 8593770-2 (Version None)
Quarter: 2012Q3

REPORT INFORMATION
  Report Type: 
  Country: None (occurrence: None)
  Receive Date: 20120814
  Receipt Date: 20120807
  Transmission Date: 20120928
  Serious: Yes (Death, Hospitalization, Other)
  Sender: FDA-Public Use
  Company Number: JP-CELGENEUS-087-50794-11072522

PATIENT
  Age: 66 Year
  Sex: Female
  Weight: 49 kg

DRUGS (17)
  1. LAXOBERON [Concomitant]
     Dosage: ^PROPER DOSE^
     Route: 048
  2. KATIV-N [Concomitant]
     Dosage: 20 MILLIGRAM
     Route: 048
  3. FOLIC ACID [Concomitant]
     Dosage: 15 MILLIGRAM
     Route: 048
  4. POLARAMINE [Concomitant]
     Dosage: 5 MILLIGRAM
     Route: 041
     Dates: start: 20110516, end: 20110516
  5. ANTIBIOTICS [Concomitant]
     Route: 065
     Dates: start: 20110501
  6. ALOSENN [Concomitant]
     Dosage: 1 GRAM
     Route: 048
  7. LASIX [Concomitant]
     Dosage: 10 MILLIGRAM
     Route: 041
     Dates: start: 20110427
  8. VIDAZA [Suspect]
     Indication: MYELODYSPLASTIC SYNDROME
     Dosage: 75 MILLIGRAM/SQ. METER
     Route: 058
     Dates: start: 20110426, end: 20110501
  9. PYRINAZIN [Concomitant]
     Dosage: 1.5 GRAM
     Route: 048
  10. VANCOMYCIN [Concomitant]
     Dosage: 1 GRAM
     Route: 041
     Dates: start: 20110502
  11. NEO-MINOPHAGEN C [Concomitant]
     Dosage: 20 MILLILITER
     Route: 041
     Dates: start: 20110516, end: 20110516
  12. LEVOFLOXACIN [Concomitant]
     Dosage: 300 MILLIGRAM
     Route: 048
  13. SODIUM BICARBONATE [Concomitant]
     Dosage: 20 MILLILITER
     Route: 041
     Dates: start: 20110427, end: 20110501
  14. MEROPENEM [Concomitant]
     Dosage: 2 GRAM
     Route: 041
     Dates: start: 20110502
  15. DIFLUCAN [Concomitant]
     Dosage: 200 MILLIGRAM
     Route: 048
  16. MAGLAX [Concomitant]
     Dosage: 330 MILLIGRAM
     Route: 048
  17. VALTREX [Concomitant]
     Dosage: 500 MILLIGRAM
     Route: 048

REACTIONS (3)
  - SEPSIS [None]
  - PLATELET COUNT DECREASED [None]
  - BRONCHOPULMONARY ASPERGILLOSIS [None]
